FAERS Safety Report 7212831-3 (Version None)
Quarter: 2011Q1

REPORT INFORMATION
  Report Type: 
  Country: None (occurrence: None)
  Receive Date: 20110106
  Receipt Date: 20101228
  Transmission Date: 20110831
  Serious: Yes (Hospitalization)
  Sender: FDA-Public Use
  Company Number: US-ELI_LILLY_AND_COMPANY-US201101000052

PATIENT
  Sex: Female

DRUGS (8)
  1. COZAAR [Concomitant]
     Dosage: 25 MG, UNKNOWN
     Route: 065
  2. HYDROCODONE [Concomitant]
     Indication: PAIN
     Dosage: UNK, UNKNOWN
     Route: 065
  3. ATENOLOL [Concomitant]
     Dosage: 25 MG, UNKNOWN
     Route: 065
  4. VITAMIN D [Concomitant]
     Dosage: UNK, UNKNOWN
     Route: 065
  5. COLACE [Concomitant]
     Indication: ABDOMINAL DISCOMFORT
     Dosage: UNK, UNKNOWN
     Route: 065
  6. FORTEO [Suspect]
     Indication: OSTEOPOROSIS
     Dosage: 20 UG, DAILY (1/D)
     Route: 065
     Dates: start: 20090501
  7. CALCIUM [Concomitant]
     Dosage: UNK, UNKNOWN
     Route: 065
  8. MULTI-VITAMIN [Concomitant]
     Dosage: UNK, UNKNOWN
     Route: 065

REACTIONS (3)
  - MENISCUS LESION [None]
  - WEIGHT BEARING DIFFICULTY [None]
  - HAEMARTHROSIS [None]
